FAERS Safety Report 8989703 (Version 1)
Quarter: 2012Q4

REPORT INFORMATION
  Report Type: 
  Country: AT (occurrence: AT)
  Receive Date: 20121228
  Receipt Date: 20121228
  Transmission Date: 20130627
  Serious: Yes (Other)
  Sender: FDA-Public Use
  Company Number: AT-TEVA-377463ISR

PATIENT
  Age: 56 Year
  Sex: Male
  Weight: 126 kg

DRUGS (1)
  1. SIMVASTATIN [Suspect]
     Indication: BLOOD TRIGLYCERIDES INCREASED
     Dosage: 40 Milligram Daily;
     Route: 048
     Dates: start: 2007, end: 201206

REACTIONS (1)
  - Psoriasis [Not Recovered/Not Resolved]
